FAERS Safety Report 8209691-0 (Version None)
Quarter: 2012Q1

REPORT INFORMATION
  Report Type: 
  Country: None (occurrence: None)
  Receive Date: 20120228
  Receipt Date: 20110113
  Transmission Date: 20120608
  Serious: Yes (Hospitalization, Other)
  Sender: FDA-Public Use
  Company Number: RB-20690-2011

PATIENT
  Sex: Male

DRUGS (3)
  1. SUBOXONE [Suspect]
     Indication: DRUG DEPENDENCE
     Dosage: (8 MG QD TRANSPLACENTAL)
     Route: 064
     Dates: start: 20090615, end: 20090601
  2. ZOLOFT [Suspect]
     Indication: MOOD SWINGS
     Dosage: (50 MG QD TRANSPLACENTAL)
     Route: 064
     Dates: end: 20100317
  3. SUBUTEX [Suspect]
     Indication: DRUG DEPENDENCE
     Dosage: (DOSING RANGES FROM 8-12 MG DAILY TRANSPLACENTAL)
     Route: 064
     Dates: start: 20090601, end: 20100317

REACTIONS (2)
  - FOETAL EXPOSURE DURING PREGNANCY [None]
  - SNEEZING [None]
